FAERS Safety Report 8913933 (Version 1)
Quarter: 2012Q4

REPORT INFORMATION
  Report Type: 
  Country: GB (occurrence: GB)
  Receive Date: 20121119
  Receipt Date: 20121119
  Transmission Date: 20130627
  Serious: Yes (Other)
  Sender: FDA-Public Use
  Company Number: GB-ELI_LILLY_AND_COMPANY-GB201211002315

PATIENT
  Sex: Female

DRUGS (2)
  1. HUMALOG LISPRO [Suspect]
     Dosage: UNK
  2. LEVEMIR [Concomitant]

REACTIONS (2)
  - Blindness [Not Recovered/Not Resolved]
  - Blood glucose increased [Recovering/Resolving]
